FAERS Safety Report 5058469-8 (Version None)
Quarter: 2006Q3

REPORT INFORMATION
  Report Type: 
  Country: None (occurrence: None)
  Receive Date: 20060721
  Receipt Date: 20060711
  Transmission Date: 20061208
  Serious: Yes (Other)
  Sender: FDA-Public Use
  Company Number: US-JNJFOC-20060600129

PATIENT
  Sex: Female
  Weight: 68.49 kg

DRUGS (7)
  1. REMICADE [Suspect]
     Route: 042
  2. REMICADE [Suspect]
     Indication: RHEUMATOID ARTHRITIS
     Route: 042
  3. METHOTREXATE [Concomitant]
  4. SULFASALAZINE [Concomitant]
  5. CELEBREX [Concomitant]
  6. PREDNISONE [Concomitant]
  7. PROTONIX [Concomitant]

REACTIONS (7)
  - COLON ADENOMA [None]
  - DIARRHOEA [None]
  - GASTRITIS [None]
  - GASTROOESOPHAGEAL REFLUX DISEASE [None]
  - HYPERAESTHESIA [None]
  - OESOPHAGITIS [None]
  - PANCREATIC DISORDER [None]
